FAERS Safety Report 8096085-4 (Version None)
Quarter: 2012Q1

REPORT INFORMATION
  Report Type: 
  Country: None (occurrence: None)
  Receive Date: 20120131
  Receipt Date: 20120123
  Transmission Date: 20120608
  Serious: Yes (Other)
  Sender: FDA-Public Use
  Company Number: FR-VERTEX PHARMACEUTICALS INC.-AE-2011-002705

PATIENT
  Sex: Male
  Weight: 74 kg

DRUGS (6)
  1. VX-950 [Suspect]
     Indication: HEPATITIS C
     Route: 048
     Dates: start: 20110321
  2. RIBAVIRIN [Concomitant]
     Indication: HEPATITIS C
  3. NEORECORMON [Concomitant]
  4. ASPIRIN [Concomitant]
  5. PEGINTERFERON ALFA-2A [Concomitant]
     Indication: HEPATITIS C
  6. ZOLPIDEM [Concomitant]

REACTIONS (4)
  - SERUM FERRITIN INCREASED [None]
  - IRON OVERLOAD [None]
  - TRANSAMINASES INCREASED [None]
  - GAMMA-GLUTAMYLTRANSFERASE INCREASED [None]
